FAERS Safety Report 16677783 (Version 1)
Quarter: 2019Q3

REPORT INFORMATION
  Report Type: Spontaneous
  Country: US (occurrence: US)
  Receive Date: 20190806
  Receipt Date: 20190806
  Transmission Date: 20191004
  Serious: Yes (Death, Life-Threatening, Hospitalization, Disabling)
  Sender: FDA-Public Use
  Company Number: None

PATIENT
  Age: 75 Year
  Sex: Male
  Weight: 58.5 kg

DRUGS (2)
  1. AMIODARONE [Suspect]
     Active Substance: AMIODARONE
     Indication: TACHYCARDIA
     Dosage: ?          QUANTITY:2 TABLET(S); EVERY 8 HRS?
     Route: 048
     Dates: start: 20181004, end: 20181130
  2. AMIODARONE [Suspect]
     Active Substance: AMIODARONE
     Indication: ATRIAL FIBRILLATION
     Dosage: ?          QUANTITY:2 TABLET(S); EVERY 8 HRS?
     Route: 048
     Dates: start: 20181004, end: 20181130

REACTIONS (8)
  - Pulmonary amyloidosis [None]
  - Orthostatic hypotension [None]
  - Cerebral amyloid angiopathy [None]
  - Amyloidosis [None]
  - Product dispensing error [None]
  - Cerebral haemorrhage [None]
  - Overdose [None]
  - Condition aggravated [None]

NARRATIVE: CASE EVENT DATE: 20181010
